FAERS Safety Report 9642840 (Version 1)
Quarter: 2013Q4

REPORT INFORMATION
  Report Type: Report from Study
  Country: BR (occurrence: BR)
  Receive Date: 20131024
  Receipt Date: 20131024
  Transmission Date: 20140711
  Serious: Yes (Other)
  Sender: FDA-Public Use
  Company Number: PHHO2013BR013464

PATIENT
  Age: 37 Year
  Sex: Male
  Weight: 79 kg

DRUGS (1)
  1. AMN107 [Suspect]
     Indication: CHRONIC MYELOID LEUKAEMIA
     Dosage: 400 MG, QD
     Route: 048
     Dates: start: 20080520

REACTIONS (2)
  - Basal cell carcinoma [Recovered/Resolved]
  - Second primary malignancy [Recovered/Resolved]
